FAERS Safety Report 8304998-0 (Version None)
Quarter: 2012Q2

REPORT INFORMATION
  Report Type: 
  Country: None (occurrence: None)
  Receive Date: 20120423
  Receipt Date: 20120411
  Transmission Date: 20120825
  Serious: Yes (Hospitalization)
  Sender: FDA-Public Use
  Company Number: FR-ROCHE-305989

PATIENT
  Age: 21 Year
  Sex: Female

DRUGS (2)
  1. ISOTRETINOIN [Suspect]
     Indication: PRODUCT USED FOR UNKNOWN INDICATION
     Route: 048
  2. ISOTRETINOIN [Suspect]
     Dosage: DOSE INCREASED
     Route: 048

REACTIONS (2)
  - DELIRIUM [None]
  - ANXIETY [None]
